FAERS Safety Report 15668592 (Version 2)
Quarter: 2019Q1

REPORT INFORMATION
  Report Type: Spontaneous
  Country: US (occurrence: US)
  Receive Date: 20181129
  Receipt Date: 20190104
  Transmission Date: 20190417
  Serious: Yes (Other)
  Sender: FDA-Public Use
  Company Number: US-PFIZER INC-2018490722

PATIENT
  Age: 71 Year
  Sex: Female

DRUGS (2)
  1. METHOTREXATE. [Concomitant]
     Active Substance: METHOTREXATE
     Dosage: UNK
  2. XELJANZ XR [Suspect]
     Active Substance: TOFACITINIB CITRATE
     Dosage: 11 MG, UNK

REACTIONS (12)
  - Fatigue [Unknown]
  - Product dose omission [Unknown]
  - Drug ineffective [Unknown]
  - Cardiac disorder [Unknown]
  - Pain [Unknown]
  - Seizure like phenomena [Unknown]
  - Sensitivity to weather change [Unknown]
  - Sedation [Unknown]
  - Fall [Unknown]
  - Malaise [Unknown]
  - Asthma [Unknown]
  - Foot fracture [Unknown]

NARRATIVE: CASE EVENT DATE: 2018
